FAERS Safety Report 13775410 (Version 1)
Quarter: 2017Q3

REPORT INFORMATION
  Report Type: Spontaneous
  Country: KR (occurrence: KR)
  Receive Date: 20170720
  Receipt Date: 20170720
  Transmission Date: 20171127
  Serious: Yes (Other)
  Sender: FDA-Public Use
  Company Number: PHHY2017KR104291

PATIENT
  Age: 56 Year
  Sex: Female

DRUGS (2)
  1. PRASUGREL. [Suspect]
     Active Substance: PRASUGREL
     Indication: INTRACRANIAL ANEURYSM
     Dosage: 30 MG LOADING DOSE
     Route: 065
  2. ACETYLSALICYLIC ACID [Suspect]
     Active Substance: ASPIRIN
     Indication: INTRACRANIAL ANEURYSM
     Dosage: 100 MG, QD
     Route: 065

REACTIONS (2)
  - Thrombotic cerebral infarction [Unknown]
  - Muscular weakness [Unknown]
